FAERS Safety Report 8203667-5 (Version None)
Quarter: 2012Q1

REPORT INFORMATION
  Report Type: 
  Country: None (occurrence: None)
  Receive Date: 20120308
  Receipt Date: 20120227
  Transmission Date: 20120608
  Serious: Yes (Disabling, Other)
  Sender: FDA-Public Use
  Company Number: 2010MA000211

PATIENT
  Sex: Male
  Weight: 150.1406 kg

DRUGS (38)
  1. FLONASE [Concomitant]
  2. H-C TUSSIVE [Concomitant]
  3. MUCINEX [Concomitant]
  4. NEXIUM [Concomitant]
  5. NYSTATIN [Concomitant]
  6. TAZTIA XT [Concomitant]
  7. ULTRACET [Concomitant]
  8. VIOXX [Concomitant]
  9. METHYLPREDNISOLONE [Concomitant]
  10. SUCRALFATE [Concomitant]
  11. GAVISCON [Concomitant]
  12. AGGRENOX [Concomitant]
  13. IMIPRAMINE [Concomitant]
  14. LOTENSIN [Concomitant]
  15. PROVIGIL [Concomitant]
  16. METOCLOPRAMIDE HYDROCHLORIDE [Suspect]
     Indication: GASTROOESOPHAGEAL REFLUX DISEASE
     Dosage: 10 MG;QID;PO
     Route: 048
     Dates: start: 20000919, end: 20090123
  17. ALLEGRA-D 12 HOUR [Concomitant]
  18. LOTREL [Concomitant]
  19. CLOTRIMAZOLE [Concomitant]
  20. FOLIC ACID [Concomitant]
  21. HYDROCODONE BITARTRATE AND ACETAMINOPHEN [Concomitant]
  22. MOBIC [Concomitant]
  23. NASONEX [Concomitant]
  24. PLAVIX [Concomitant]
  25. CIPROFLOXACIN [Concomitant]
  26. CLARITHROMYCIN [Concomitant]
  27. LIDOCAINE [Concomitant]
  28. PRILOSEC [Concomitant]
  29. AMOXICILLIN [Concomitant]
  30. CEPHALEXIN [Concomitant]
  31. DICYCLOMINE [Concomitant]
  32. HISTENEX HC [Concomitant]
  33. NEURONTIN [Concomitant]
  34. NORVASC [Concomitant]
  35. AMBIEN [Concomitant]
  36. LEXAPRO [Concomitant]
  37. NIASPAN [Concomitant]
  38. ZYMAR [Concomitant]

REACTIONS (29)
  - ACTIVITIES OF DAILY LIVING IMPAIRED [None]
  - ABDOMINAL DISTENSION [None]
  - PAIN [None]
  - DYSPEPSIA [None]
  - SCAR [None]
  - UMBILICAL HERNIA REPAIR [None]
  - DIVERTICULUM INTESTINAL [None]
  - MULTIPLE INJURIES [None]
  - NERVOUS SYSTEM DISORDER [None]
  - MENTAL DISORDER [None]
  - PARAESTHESIA [None]
  - TONGUE NEOPLASM [None]
  - FUNGAL INFECTION [None]
  - EXTRAPYRAMIDAL DISORDER [None]
  - TARDIVE DYSKINESIA [None]
  - DEFORMITY [None]
  - DIARRHOEA [None]
  - DIABETES MELLITUS [None]
  - GASTRITIS EROSIVE [None]
  - HEPATIC CYST [None]
  - BURNING MOUTH SYNDROME [None]
  - GAIT DISTURBANCE [None]
  - HYPOAESTHESIA ORAL [None]
  - TREMOR [None]
  - ORAL HERPES [None]
  - GASTROOESOPHAGEAL REFLUX DISEASE [None]
  - RENAL CYST [None]
  - TOOTH EXTRACTION [None]
  - WEIGHT DECREASED [None]
